FAERS Safety Report 24011230 (Version 1)
Quarter: 2024Q2

REPORT INFORMATION
  Report Type: Spontaneous
  Country: GB (occurrence: GB)
  Receive Date: 20240625
  Receipt Date: 20240625
  Transmission Date: 20240716
  Serious: Yes (Hospitalization, Other)
  Sender: FDA-Public Use
  Company Number: GB-SA-SAC20240621000014

PATIENT
  Sex: Male

DRUGS (1)
  1. AUBAGIO [Suspect]
     Active Substance: TERIFLUNOMIDE
     Indication: Product used for unknown indication
     Dosage: 14 MG
     Route: 048
     Dates: start: 201810, end: 202406

REACTIONS (2)
  - Hypertensive crisis [Unknown]
  - Hypertension [Unknown]
